FAERS Safety Report 5720858-3 (Version None)
Quarter: 2008Q2

REPORT INFORMATION
  Report Type: 
  Country: None (occurrence: None)
  Receive Date: 20080429
  Receipt Date: 20070830
  Transmission Date: 20081010
  Serious: No
  Sender: FDA-Public Use
  Company Number: A0677765A

PATIENT
  Sex: Female

DRUGS (4)
  1. SEREVENT [Suspect]
     Indication: ASTHMA
     Route: 055
     Dates: start: 20020101
  2. SEREVENT [Suspect]
     Route: 055
  3. PULMICORT [Concomitant]
  4. ALBUTEROL [Concomitant]

REACTIONS (4)
  - COUGH [None]
  - DYSPHONIA [None]
  - PHARYNGOLARYNGEAL DISCOMFORT [None]
  - RHINITIS [None]
